FAERS Safety Report 10183796 (Version 1)
Quarter: 2014Q2

REPORT INFORMATION
  Report Type: Report from Study
  Country: US (occurrence: US)
  Receive Date: 20140520
  Receipt Date: 20140520
  Transmission Date: 20141212
  Serious: Yes (Hospitalization, Other)
  Sender: FDA-Public Use
  Company Number: US-ABBVIE-14P-163-1237811-00

PATIENT
  Age: 66 Year
  Sex: Female

DRUGS (4)
  1. HUMIRA [Suspect]
     Indication: RHEUMATOID ARTHRITIS
     Dates: start: 2004
  2. HUMIRA [Suspect]
     Dates: start: 201308
  3. HUMIRA [Suspect]
     Dosage: EARLY INJECTION, DUE ON 16 MAY 2014
     Dates: start: 20140510
  4. METHOTREXATE [Concomitant]
     Indication: PRODUCT USED FOR UNKNOWN INDICATION

REACTIONS (11)
  - Chills [Unknown]
  - Bunion operation [Unknown]
  - Dysuria [Unknown]
  - Pruritus genital [Unknown]
  - Pyrexia [Unknown]
  - Tremor [Unknown]
  - Infection [Unknown]
  - Fear [Unknown]
  - Mycobacterium tuberculosis complex test positive [Unknown]
  - Memory impairment [Unknown]
  - Inappropriate schedule of drug administration [Unknown]
